FAERS Safety Report 12933231 (Version 2)
Quarter: 2017Q1

REPORT INFORMATION
  Report Type: Spontaneous
  Country: US (occurrence: US)
  Receive Date: 20161111
  Receipt Date: 20170127
  Transmission Date: 20170428
  Serious: Yes (Other)
  Sender: FDA-Public Use
  Company Number: US-SA-2016SA203858

PATIENT
  Age: 62 Year
  Sex: Female

DRUGS (8)
  1. ASPIRIN. [Concomitant]
     Active Substance: ASPIRIN
  2. ROSUVASTATIN. [Concomitant]
     Active Substance: ROSUVASTATIN
  3. RAMIPRIL. [Concomitant]
     Active Substance: RAMIPRIL
  4. METOPROLOL SUCCINATE. [Concomitant]
     Active Substance: METOPROLOL SUCCINATE
  5. CLOPIDOGREL [Concomitant]
     Active Substance: CLOPIDOGREL BISULFATE
  6. PRALUENT [Suspect]
     Active Substance: ALIROCUMAB
     Indication: HYPERLIPIDAEMIA
     Dosage: DOSE:75 MILLIGRAM(S)/MILLILITRE
     Route: 058
  7. EZETIMIBE. [Concomitant]
     Active Substance: EZETIMIBE
  8. DOXAZOSIN [Concomitant]
     Active Substance: DOXAZOSIN\DOXAZOSIN MESYLATE

REACTIONS (6)
  - Renal tubular necrosis [Recovered/Resolved]
  - Oedema peripheral [Recovered/Resolved]
  - Renal tubular disorder [Recovered/Resolved]
  - Urine protein/creatinine ratio increased [Recovered/Resolved]
  - Blood creatinine increased [Recovered/Resolved]
  - Biopsy kidney abnormal [Recovered/Resolved]
